FAERS Safety Report 5804855-5 (Version None)
Quarter: 2008Q3

REPORT INFORMATION
  Report Type: 
  Country: None (occurrence: None)
  Receive Date: 20080709
  Receipt Date: 20080701
  Transmission Date: 20090109
  Serious: Yes (Hospitalization)
  Sender: FDA-Public Use
  Company Number: US-AVENTIS-200718313US

PATIENT
  Sex: Female
  Weight: 52.7 kg

DRUGS (5)
  1. KETEK [Suspect]
     Dates: start: 20060421, end: 20060511
  2. KETEK [Suspect]
     Dosage: DOSE: UNK
     Dates: start: 20070201, end: 20070201
  3. ACETAMINOPHEN [Concomitant]
     Dosage: DOSE: UNK
  4. IBUPROFEN [Concomitant]
     Dosage: DOSE: UNK
  5. NASONEX [Concomitant]
     Dosage: DOSE: UNK

REACTIONS (18)
  - ABDOMINAL PAIN UPPER [None]
  - ALANINE AMINOTRANSFERASE INCREASED [None]
  - ASCITES [None]
  - ASPARTATE AMINOTRANSFERASE INCREASED [None]
  - BILIRUBIN CONJUGATED INCREASED [None]
  - BILIRUBINURIA [None]
  - BLOOD ALKALINE PHOSPHATASE INCREASED [None]
  - FATIGUE [None]
  - HEPATITIS ACUTE [None]
  - HYPERHIDROSIS [None]
  - HYPOPROTEINAEMIA [None]
  - MALAISE [None]
  - MYALGIA [None]
  - NAUSEA [None]
  - PYREXIA [None]
  - THROMBOCYTOPENIA [None]
  - ULTRASOUND ABDOMEN ABNORMAL [None]
  - VOMITING [None]
